FAERS Safety Report 8456842-9 (Version None)
Quarter: 2012Q2

REPORT INFORMATION
  Report Type: 
  Country: None (occurrence: None)
  Receive Date: 20120621
  Receipt Date: 20120614
  Transmission Date: 20120825
  Serious: No
  Sender: FDA-Public Use
  Company Number: US-PFIZER INC-2012144180

PATIENT
  Sex: Female

DRUGS (3)
  1. TRAMADOL HCL [Suspect]
  2. MELOXICAM [Suspect]
  3. IBUPROFEN [Suspect]
     Dosage: 400 MG, 2X/DAY

REACTIONS (1)
  - DRUG EFFECT DECREASED [None]
